FAERS Safety Report 7724759-0 (Version None)
Quarter: 2011Q3

REPORT INFORMATION
  Report Type: 
  Country: None (occurrence: None)
  Receive Date: 20110829
  Receipt Date: 20110811
  Transmission Date: 20111222
  Serious: Yes (Hospitalization, Other)
  Sender: FDA-Public Use
  Company Number: 2011MA011710

PATIENT
  Age: 49 Year
  Sex: Male

DRUGS (4)
  1. OLANZAPINE [Suspect]
     Dosage: 2.5 GRAMS;1X;PO
     Route: 048
  2. VENLAFAXINE [Suspect]
     Dosage: 4.2 GRAMS;1X;PO
     Route: 048
  3. ETHANOL (ETHANOL) [Suspect]
     Dosage: PO
     Route: 048
  4. VALACYCLOVIR HYDROCHLORIDE [Suspect]
     Dosage: 30 GRAMS;1X;PO
     Route: 048

REACTIONS (7)
  - CRYSTALLURIA [None]
  - RENAL FAILURE ACUTE [None]
  - LACTIC ACIDOSIS [None]
  - MULTIPLE DRUG OVERDOSE [None]
  - TACHYCARDIA [None]
  - HYPOTENSION [None]
  - THROMBOCYTOPENIA [None]
